FAERS Safety Report 6784831-9 (Version None)
Quarter: 2010Q2

REPORT INFORMATION
  Report Type: 
  Country: None (occurrence: None)
  Receive Date: 20100622
  Receipt Date: 20090625
  Transmission Date: 20101027
  Serious: Yes (Death)
  Sender: FDA-Public Use
  Company Number: TH-GENZYME-THYM-1001079

PATIENT

DRUGS (1)
  1. THYMOGLOBULIN [Suspect]
     Indication: GRAFT VERSUS HOST DISEASE
     Route: 042

REACTIONS (2)
  - NEUTROPENIA [None]
  - THROMBOCYTOPENIA [None]
